FAERS Safety Report 14398655 (Version 1)
Quarter: 2018Q1

REPORT INFORMATION
  Report Type: Spontaneous
  Country: US (occurrence: US)
  Receive Date: 20180117
  Receipt Date: 20180117
  Transmission Date: 20180509
  Serious: Yes (Hospitalization)
  Sender: FDA-Public Use
  Company Number: US-TEVA-2018-US-847372

PATIENT
  Age: 73 Year
  Sex: Female

DRUGS (2)
  1. AUSTEDO [Suspect]
     Active Substance: DEUTETRABENAZINE
     Indication: TARDIVE DYSKINESIA
     Dosage: TITRATION PERIOD
     Route: 065
     Dates: start: 20171026
  2. AUSTEDO [Suspect]
     Active Substance: DEUTETRABENAZINE
     Dosage: 36 MILLIGRAM DAILY; CURRENT DOSE: 18MG BID
     Route: 065

REACTIONS (1)
  - Pneumonia [Unknown]
